FAERS Safety Report 9975771 (Version 1)
Quarter: 2014Q1

REPORT INFORMATION
  Report Type: Spontaneous
  Country: US (occurrence: US)
  Receive Date: 20140306
  Receipt Date: 20140306
  Transmission Date: 20141002
  Serious: Yes (Death, Hospitalization)
  Sender: FDA-Public Use
  Company Number: US-B.I. PHARMACEUTICALS,INC./RIDGEFIELD-2014-BI-09814BP

PATIENT
  Sex: Female

DRUGS (1)
  1. PRADAXA [Suspect]
     Indication: ATRIAL FIBRILLATION
     Dosage: 300 MG
     Route: 065
     Dates: start: 20120229

REACTIONS (6)
  - Haemorrhage [Fatal]
  - Haematuria [Unknown]
  - Haemorrhagic anaemia [Unknown]
  - Lacrimal haemorrhage [Unknown]
  - Epistaxis [Unknown]
  - Mouth haemorrhage [Unknown]
